FAERS Safety Report 8868786 (Version 3)
Quarter: 2013Q1

REPORT INFORMATION
  Report Type: Spontaneous
  Country: US (occurrence: US)
  Receive Date: 20121024
  Receipt Date: 20130322
  Transmission Date: 20140127
  Serious: Yes (Hospitalization, Other)
  Sender: FDA-Public Use
  Company Number: US-INCYTE CORPORATION-2012IN002098

PATIENT
  Age: 62 None
  Sex: Female
  Weight: 77.1 kg

DRUGS (3)
  1. JAKAFI [Suspect]
     Indication: MYELOFIBROSIS
     Dosage: 15 MG, BID
     Route: 048
     Dates: start: 20120524, end: 201208
  2. HYDROXYUREA [Concomitant]
  3. VERAPAMIL [Concomitant]
     Dosage: 240 MG, QD

REACTIONS (2)
  - Pancreatitis [Recovered/Resolved]
  - Anaemia [Unknown]
